FAERS Safety Report 19351550 (Version 1)
Quarter: 2021Q2

REPORT INFORMATION
  Report Type: Spontaneous
  Country: US (occurrence: US)
  Receive Date: 20210531
  Receipt Date: 20210531
  Transmission Date: 20210717
  Serious: Yes (Other)
  Sender: FDA-Public Use
  Company Number: US-SA-2021SA170300

PATIENT
  Age: 77 Year
  Sex: Female

DRUGS (2)
  1. TYLENOL [Concomitant]
     Active Substance: ACETAMINOPHEN
     Dosage: UNK
  2. MULTAQ [Suspect]
     Active Substance: DRONEDARONE
     Indication: ARRHYTHMIA
     Dosage: 400 MG, TID
     Dates: start: 20190816

REACTIONS (6)
  - Bronchitis [Unknown]
  - Dyspepsia [Unknown]
  - Renal impairment [Unknown]
  - Protein urine [Unknown]
  - Arrhythmia [Unknown]
  - Anaemia [Unknown]
